FAERS Safety Report 4449197-8 (Version None)
Quarter: 2004Q3

REPORT INFORMATION
  Report Type: 
  Country: None (occurrence: None)
  Receive Date: 20040910
  Receipt Date: 20040830
  Transmission Date: 20050211
  Serious: Yes (Hospitalization, Other)
  Sender: FDA-Public Use
  Company Number: 2004061450

PATIENT
  Age: 30 Year
  Sex: Female

DRUGS (2)
  1. ZYRTEC [Suspect]
     Indication: PRURITUS
     Dosage: 10 MG, ORAL
     Route: 048
     Dates: start: 20040501, end: 20040504
  2. IMIPRAMINE [Suspect]
     Indication: ILL-DEFINED DISORDER
     Dosage: ORAL
     Route: 048

REACTIONS (2)
  - MULTIPLE SCLEROSIS [None]
  - SOMNOLENCE [None]
